FAERS Safety Report 10161092 (Version 2)
Quarter: 2014Q2

REPORT INFORMATION
  Report Type: Spontaneous
  Country: US (occurrence: US)
  Receive Date: 20140508
  Receipt Date: 20140618
  Transmission Date: 20141212
  Serious: No
  Sender: FDA-Public Use
  Company Number: US-PFIZER INC-2014123559

PATIENT
  Age: 85 Year
  Sex: Female
  Weight: 60.32 kg

DRUGS (8)
  1. CELEBREX [Suspect]
     Indication: ARTHRALGIA
     Dosage: 200 MG, 1X/DAY
     Route: 048
     Dates: start: 2013, end: 20140428
  2. SIMVASTATIN [Concomitant]
     Dosage: 40 MG, 1X/DAY
  3. CLONIDINE [Concomitant]
     Dosage: 0.1 MG, 3X/DAY
  4. POTASSIUM [Concomitant]
     Dosage: 18 MEQ, 1X/DAY
  5. TRAMADOL [Concomitant]
     Dosage: 50 MG, AS NEEDED
  6. NEXIUM [Concomitant]
     Dosage: 40 MG, 1X/DAY
  7. FUROSEMIDE [Concomitant]
     Dosage: 40 MG, 1X/DAY
  8. CITALOPRAM [Concomitant]
     Dosage: 20 MG, 1X/DAY

REACTIONS (1)
  - No adverse event [Unknown]
